FAERS Safety Report 18265484 (Version 1)
Quarter: 2020Q3

REPORT INFORMATION
  Report Type: Spontaneous
  Country: US (occurrence: US)
  Receive Date: 20200915
  Receipt Date: 20200915
  Transmission Date: 20201103
  Serious: Yes (Hospitalization, Other)
  Sender: FDA-Public Use
  Company Number: US-LUPIN PHARMACEUTICALS INC.-2020-02031

PATIENT
  Sex: Male

DRUGS (2)
  1. BOSENTAN. [Suspect]
     Active Substance: BOSENTAN
     Indication: EJECTION FRACTION DECREASED
     Dosage: UNK (25 YEARS AGO)
     Route: 065
  2. TYLENOL [Concomitant]
     Active Substance: ACETAMINOPHEN
     Indication: PRODUCT USED FOR UNKNOWN INDICATION
     Dosage: UNK
     Route: 065

REACTIONS (3)
  - Cerebrovascular accident [Unknown]
  - Dysarthria [Unknown]
  - Daydreaming [Unknown]
